FAERS Safety Report 6081478-7 (Version None)
Quarter: 2009Q1

REPORT INFORMATION
  Report Type: 
  Country: None (occurrence: None)
  Receive Date: 20090213
  Receipt Date: 20090128
  Transmission Date: 20090719
  Serious: Yes (Hospitalization)
  Sender: FDA-Public Use
  Company Number: 000275

PATIENT
  Sex: Male
  Weight: 90 kg

DRUGS (5)
  1. NEUPRO [Suspect]
     Indication: PARKINSON'S DISEASE
     Dosage: (2 MG QD), (4 MG QD)
     Dates: start: 20061214, end: 20061217
  2. NEUPRO [Suspect]
     Indication: PARKINSON'S DISEASE
     Dosage: (2 MG QD), (4 MG QD)
     Dates: start: 20061218
  3. RAMIPRIL [Concomitant]
  4. METOHEXAL /00376902/ [Concomitant]
  5. HYDROCHLOROTHIAZIDE [Concomitant]

REACTIONS (1)
  - BLADDER CANCER [None]
